FAERS Safety Report 5599852-1 (Version None)
Quarter: 2008Q1

REPORT INFORMATION
  Report Type: 
  Country: None (occurrence: None)
  Receive Date: 20080117
  Receipt Date: 20080117
  Transmission Date: 20080703
  Serious: Yes (Other)
  Sender: FDA-Public Use
  Company Number: None

PATIENT
  Age: 46 Year
  Sex: Female
  Weight: 63.5036 kg

DRUGS (2)
  1. FENTANYL-100 [Suspect]
     Indication: PAIN
     Dosage: 1 PATCH 100MCG Q72H TRANSDERMAL
     Route: 062
     Dates: start: 20071201
  2. FENTANYL-50 [Suspect]
     Dosage: 1 PATCH 50MCG Q72H TRANSDER
     Route: 062
     Dates: start: 20071201

REACTIONS (2)
  - APPLICATION SITE RASH [None]
  - DERMATITIS CONTACT [None]
